FAERS Safety Report 5924160-6 (Version None)
Quarter: 2008Q4

REPORT INFORMATION
  Report Type: 
  Country: None (occurrence: None)
  Receive Date: 20081015
  Receipt Date: 20081006
  Transmission Date: 20090506
  Serious: Yes (Other)
  Sender: FDA-Public Use
  Company Number: 2008AP002678

PATIENT
  Age: 68 Year
  Sex: Male

DRUGS (4)
  1. CAPTOPRIL [Suspect]
     Indication: ISCHAEMIC HEART DISEASE PROPHYLAXIS
     Dosage: 12.5 MG, BID; PO
     Route: 048
     Dates: start: 19950601
  2. ACETYLSALICYLIC ACID SRT [Concomitant]
  3. ATENOLOL [Concomitant]
  4. COD LIVER OIL FORTIFIED TAB [Concomitant]

REACTIONS (3)
  - LOCALISED INFECTION [None]
  - MIGRAINE [None]
  - VISUAL IMPAIRMENT [None]
